FAERS Safety Report 8614428-7 (Version None)
Quarter: 2012Q3

REPORT INFORMATION
  Report Type: 
  Country: None (occurrence: None)
  Receive Date: 20120823
  Receipt Date: 20120814
  Transmission Date: 20120928
  Serious: Yes (Hospitalization, Other)
  Sender: FDA-Public Use
  Company Number: BR-JNJFOC-20120809446

PATIENT
  Sex: Female
  Weight: 45 kg

DRUGS (2)
  1. REMICADE [Suspect]
     Indication: RHEUMATOID ARTHRITIS
     Route: 042
     Dates: start: 20111201
  2. CIMETIDINE [Concomitant]
     Indication: GASTRIC DISORDER
     Route: 065

REACTIONS (5)
  - ANGIOPLASTY [None]
  - ARTHRALGIA [None]
  - CHEST PAIN [None]
  - SKIN MASS [None]
  - WEIGHT DECREASED [None]
